FAERS Safety Report 6087477-3 (Version None)
Quarter: 2009Q1

REPORT INFORMATION
  Report Type: 
  Country: None (occurrence: None)
  Receive Date: 20090218
  Receipt Date: 20090218
  Transmission Date: 20090719
  Serious: No
  Sender: FDA-Public Use
  Company Number: None

PATIENT
  Age: 21 Year
  Sex: Male
  Weight: 73.4827 kg

DRUGS (1)
  1. COMPAZINE [Suspect]

REACTIONS (4)
  - CONVULSION [None]
  - HAND DEFORMITY [None]
  - PARALYSIS [None]
  - TREMOR [None]
